FAERS Safety Report 9684176 (Version 2)
Quarter: 2014Q2

REPORT INFORMATION
  Report Type: Spontaneous
  Country: US (occurrence: US)
  Receive Date: 20131112
  Receipt Date: 20140418
  Transmission Date: 20141212
  Serious: Yes (Hospitalization)
  Sender: FDA-Public Use
  Company Number: US-B.I. PHARMACEUTICALS,INC./RIDGEFIELD-2013-BI-36356BP

PATIENT
  Age: 79 Year
  Sex: Female
  Weight: 99.79 kg

DRUGS (10)
  1. PRADAXA [Suspect]
     Indication: ATRIAL FIBRILLATION
     Route: 065
     Dates: start: 20110818, end: 20110906
  2. NEURONTIN [Concomitant]
     Dosage: 900 MG
     Route: 065
  3. HYDROXYZINE [Concomitant]
     Route: 048
  4. VALSARTAN [Concomitant]
     Route: 065
  5. DIOVAN [Concomitant]
     Dosage: 160 MG
     Route: 065
  6. CALCIUM CARBONATE [Concomitant]
     Route: 065
  7. VITAMIN D [Concomitant]
     Route: 065
  8. KAYEXALATE [Concomitant]
     Route: 065
  9. LASIX [Concomitant]
     Dosage: 40 MG
     Route: 065
  10. MULTIVITAMIN [Concomitant]
     Route: 065

REACTIONS (4)
  - Gastrointestinal haemorrhage [Recovered/Resolved]
  - Anaemia [Unknown]
  - Hyperkalaemia [Unknown]
  - Renal failure [Unknown]
